FAERS Safety Report 21350118 (Version 1)
Quarter: 2022Q3

REPORT INFORMATION
  Report Type: Spontaneous
  Country: US (occurrence: None)
  Receive Date: 20220917
  Receipt Date: 20220917
  Transmission Date: 20221027
  Serious: Yes (Hospitalization)
  Sender: FDA-Public Use
  Company Number: None

PATIENT
  Age: 12 Year
  Sex: Female
  Weight: 28.2 kg

DRUGS (4)
  1. CYCLOPHOSPHAMIDE [Suspect]
     Active Substance: CYCLOPHOSPHAMIDE
     Dates: end: 20220812
  2. CYTARABINE [Suspect]
     Active Substance: CYTARABINE
     Dates: end: 20220821
  3. GLEEVEC [Suspect]
     Active Substance: IMATINIB MESYLATE
     Dates: end: 20220825
  4. THIOGUANINE ANHYDROUS [Suspect]
     Active Substance: THIOGUANINE ANHYDROUS
     Dates: end: 20220825

REACTIONS (21)
  - Febrile neutropenia [None]
  - Sepsis [None]
  - Tachycardia [None]
  - Electrolyte imbalance [None]
  - Blood culture positive [None]
  - Therapy interrupted [None]
  - Klebsiella test positive [None]
  - Enterobacter test positive [None]
  - Pancytopenia [None]
  - Abdominal pain [None]
  - Haematuria [None]
  - Candida infection [None]
  - Tachypnoea [None]
  - Septic pulmonary embolism [None]
  - Renal embolism [None]
  - Splenic embolism [None]
  - Hypoxia [None]
  - Diarrhoea [None]
  - Shock [None]
  - Blood lactic acid increased [None]
  - Ejection fraction decreased [None]

NARRATIVE: CASE EVENT DATE: 20220827
